FAERS Safety Report 24572200 (Version 2)
Quarter: 2024Q4

REPORT INFORMATION
  Report Type: Spontaneous
  Country: IN (occurrence: IN)
  Receive Date: 20241101
  Receipt Date: 20241204
  Transmission Date: 20250115
  Serious: Yes (Hospitalization)
  Sender: PFIZER
  Company Number: IN-PFIZER INC-PV202400133013

PATIENT
  Age: 56 Year
  Sex: Male

DRUGS (8)
  1. LORLATINIB [Suspect]
     Active Substance: LORLATINIB
     Indication: Non-small cell lung cancer metastatic
     Dosage: 50 MG, 1X/DAY
     Route: 048
     Dates: start: 20241007
  2. LORLATINIB [Suspect]
     Active Substance: LORLATINIB
     Dosage: 100 MG
     Dates: start: 20241007
  3. LORLATINIB [Suspect]
     Active Substance: LORLATINIB
     Dosage: 100 MG, 1X/DAY
     Route: 048
  4. LORLATINIB [Suspect]
     Active Substance: LORLATINIB
     Dosage: 100 MG
     Dates: start: 20241008
  5. ATORVASTATIN [Concomitant]
     Active Substance: ATORVASTATIN
     Dosage: UNK
  6. METOPROLOL [Concomitant]
     Active Substance: METOPROLOL
     Dosage: UNK
  7. RAMIPRIL [Concomitant]
     Active Substance: RAMIPRIL
     Dosage: UNK
  8. PREGABALIN [Concomitant]
     Active Substance: PREGABALIN
     Dosage: UNK

REACTIONS (11)
  - Infection [Unknown]
  - Fatigue [Unknown]
  - Anaemia [Unknown]
  - Anxiety [Unknown]
  - Depression [Unknown]
  - Weight decreased [Unknown]
  - Asthenia [Unknown]
  - Stress [Unknown]
  - Tension [Unknown]
  - Pain [Unknown]
  - Weight increased [Unknown]
